FAERS Safety Report 17018209 (Version 2)
Quarter: 2019Q4

REPORT INFORMATION
  Report Type: Spontaneous
  Country: US (occurrence: US)
  Receive Date: 20191111
  Receipt Date: 20191130
  Transmission Date: 20200122
  Serious: Yes (Other)
  Sender: FDA-Public Use
  Company Number: US-AMGEN-USASP2019184059

PATIENT
  Age: 42 Year
  Sex: Female
  Weight: 106.12 kg

DRUGS (17)
  1. LEVAQUIN [Concomitant]
     Active Substance: LEVOFLOXACIN
     Dosage: 500 MILLIGRAM, QD
     Route: 048
     Dates: start: 20191030
  2. DIPHENHYDRAMINE HCL [Concomitant]
     Active Substance: DIPHENHYDRAMINE HYDROCHLORIDE
     Dosage: 25 MILLIGRAM
     Dates: start: 20191024
  3. ZOFRAN [Concomitant]
     Active Substance: ONDANSETRON HYDROCHLORIDE
     Indication: VOMITING
  4. LIDOCAINE/PRILOCAINE [Concomitant]
     Active Substance: LIDOCAINE\PRILOCAINE
     Dosage: 2.5-2.5 %, 01 TOPICAL APPLICATION
     Route: 061
     Dates: start: 20191030
  5. CYCLOPHOSPHAMIDE. [Concomitant]
     Active Substance: CYCLOPHOSPHAMIDE
     Indication: BREAST CANCER FEMALE
     Dosage: 900 MILLIGRAM, Q3WK
     Dates: start: 20191024
  6. DEXAMETHASONE SODIUM PHOSPHATE. [Concomitant]
     Active Substance: DEXAMETHASONE SODIUM PHOSPHATE
     Dosage: 10 MILLIGRAM
     Dates: start: 20191024
  7. COMPAZINE [Concomitant]
     Active Substance: PROCHLORPERAZINE MALEATE
     Indication: NAUSEA
     Dosage: 10 MILLIGRAM, Q6H AS NECESSARY
     Route: 048
     Dates: start: 20191030
  8. COMPAZINE [Concomitant]
     Active Substance: PROCHLORPERAZINE MALEATE
     Indication: VOMITING
  9. VITAMIN D2 [Concomitant]
     Active Substance: ERGOCALCIFEROL
     Dosage: UNK
     Route: 048
     Dates: end: 20191030
  10. ULTRACET [Concomitant]
     Active Substance: ACETAMINOPHEN\TRAMADOL HYDROCHLORIDE
     Indication: PAIN
     Dosage: 37.5-325 MILLIGRAM, Q8H AS NEEDE
     Route: 048
     Dates: start: 20191030
  11. TYLENOL WITH CODEINE [Concomitant]
     Active Substance: ACETAMINOPHEN\CODEINE PHOSPHATE
     Indication: PAIN
     Dosage: 30-300 MG, Q4H PRN
     Route: 048
     Dates: start: 20191030
  12. FAMOTIDINE. [Concomitant]
     Active Substance: FAMOTIDINE
     Dosage: 20 MILLIGRAM
     Dates: start: 20191024
  13. NEULASTA [Suspect]
     Active Substance: PEGFILGRASTIM
     Indication: NEUTROPENIA
     Dosage: 6 MILLIGRAM, Q3WK
     Route: 058
     Dates: start: 20191024
  14. DOCETAXEL. [Concomitant]
     Active Substance: DOCETAXEL
     Indication: BREAST CANCER FEMALE
     Dosage: 120 MILLIGRAM, Q3WK
     Dates: start: 20191024
  15. PALONOSETRON HCL [Concomitant]
     Active Substance: PALONOSETRON HYDROCHLORIDE
     Dosage: 0.25 MILLIGRAM
     Dates: start: 20191024
  16. DEXAMETHASONE. [Concomitant]
     Active Substance: DEXAMETHASONE
     Dosage: 8 MILLIGRAM
     Route: 048
     Dates: start: 20191024
  17. ZOFRAN [Concomitant]
     Active Substance: ONDANSETRON HYDROCHLORIDE
     Indication: NAUSEA
     Dosage: 8 MILLIGRAM, Q8H AS NECESSARY
     Route: 048
     Dates: start: 20191030

REACTIONS (3)
  - Neutropenia [Recovered/Resolved]
  - Wrong technique in product usage process [Unknown]
  - Incorrect disposal of product [Unknown]

NARRATIVE: CASE EVENT DATE: 201910
